FAERS Safety Report 9111947 (Version 1)
Quarter: 2013Q1

REPORT INFORMATION
  Report Type: Spontaneous
  Country: US (occurrence: US)
  Receive Date: 20130219
  Receipt Date: 20130219
  Transmission Date: 20140127
  Serious: No
  Sender: FDA-Public Use
  Company Number: US-BRISTOL-MYERS SQUIBB COMPANY-16671638

PATIENT
  Age: 63 Year
  Sex: Female

DRUGS (4)
  1. ORENCIA [Suspect]
     Indication: RHEUMATOID ARTHRITIS
     Dosage: LAST INJECTION WAS ON 01JUN12,DOSE:125MG/ML
     Route: 058
     Dates: start: 201204
  2. HYDROXYCHLOROQUINE [Concomitant]
  3. PREDNISOLONE [Concomitant]
  4. VICODIN ES [Concomitant]

REACTIONS (2)
  - Blister [Recovered/Resolved]
  - Rash [Recovering/Resolving]
